FAERS Safety Report 9914608 (Version 2)
Quarter: 2014Q1

REPORT INFORMATION
  Report Type: Report from Study
  Country: US (occurrence: US)
  Receive Date: 20140220
  Receipt Date: 20140327
  Transmission Date: 20141002
  Serious: Yes (Hospitalization, Other)
  Sender: FDA-Public Use
  Company Number: US-BRISTOL-MYERS SQUIBB COMPANY-20185047

PATIENT
  Age: 67 Year
  Sex: Female
  Weight: 88.3 kg

DRUGS (2)
  1. IXEMPRA [Suspect]
     Indication: NEOPLASM MALIGNANT
     Dosage: RECENT DOSE 13JAN14?32MG/M2 IV OVER 3 HOURS ON DAY 1
     Route: 042
     Dates: start: 20140113
  2. TEMSIROLIMUS [Suspect]
     Indication: NEOPLASM MALIGNANT
     Dosage: RECENT DOSE 13JAN14?15MG IV OVER 30-60MINS ON DAY 1 + 8
     Route: 042
     Dates: start: 20140113

REACTIONS (11)
  - Syncope [Recovered/Resolved]
  - Hyponatraemia [Recovered/Resolved]
  - Hypotension [Recovered/Resolved]
  - Electrocardiogram QT prolonged [Recovering/Resolving]
  - Lymphocyte count decreased [Unknown]
  - Febrile neutropenia [Unknown]
  - Hypokalaemia [Recovered/Resolved]
  - Alanine aminotransferase increased [Unknown]
  - Hypophosphataemia [Recovered/Resolved]
  - Sepsis [Recovering/Resolving]
  - Hypomagnesaemia [Recovered/Resolved]
